FAERS Safety Report 14203975 (Version 1)
Quarter: 2017Q4

REPORT INFORMATION
  Report Type: Spontaneous
  Country: FR (occurrence: FR)
  Receive Date: 20171120
  Receipt Date: 20171120
  Transmission Date: 20180321
  Serious: Yes (Hospitalization)
  Sender: FDA-Public Use
  Company Number: FR-ASTRAZENECA-2017SF16571

PATIENT
  Age: 44 Year
  Sex: Male

DRUGS (9)
  1. XEROQUEL SR [Suspect]
     Active Substance: QUETIAPINE FUMARATE
     Indication: BIPOLAR DISORDER
     Route: 048
     Dates: start: 20170927, end: 20171018
  2. NICOPATCH [Concomitant]
     Active Substance: NICOTINE
  3. AMYCOR [Concomitant]
     Active Substance: BIFONAZOLE
  4. MIANSERIN [Concomitant]
     Active Substance: MIANSERIN
     Dosage: 10.0MG UNKNOWN
     Dates: start: 20170927
  5. DOLIPRANE [Concomitant]
     Active Substance: ACETAMINOPHEN
  6. VALIUM [Concomitant]
     Active Substance: DIAZEPAM
  7. XEROQUEL SR [Suspect]
     Active Substance: QUETIAPINE FUMARATE
     Indication: BIPOLAR DISORDER
     Route: 048
     Dates: start: 2012, end: 2016
  8. TIAPRIDAL [Suspect]
     Active Substance: TIAPRIDE HYDROCHLORIDE
     Indication: BIPOLAR DISORDER
     Route: 065
     Dates: start: 20171005, end: 20171018
  9. LYRICA [Suspect]
     Active Substance: PREGABALIN
     Indication: PAIN
     Route: 065
     Dates: start: 20171006, end: 20171018

REACTIONS (2)
  - Rhabdomyolysis [Recovering/Resolving]
  - Hepatocellular injury [Recovering/Resolving]

NARRATIVE: CASE EVENT DATE: 20171017
